FAERS Safety Report 24640606 (Version 2)
Quarter: 2024Q4

REPORT INFORMATION
  Report Type: Spontaneous
  Country: US (occurrence: US)
  Receive Date: 20241120
  Receipt Date: 20241129
  Transmission Date: 20250115
  Serious: Yes (Other)
  Sender: AMGEN
  Company Number: US-AMGEN-USASP2024226599

PATIENT
  Age: 59 Year
  Sex: Female
  Weight: 112.47 kg

DRUGS (3)
  1. OTEZLA [Suspect]
     Active Substance: APREMILAST
     Indication: Psoriasis
     Dosage: 30 MILLIGRAM, BID
     Route: 048
  2. OTEZLA [Suspect]
     Active Substance: APREMILAST
     Indication: Psoriatic arthropathy
  3. IBUPROFEN [Concomitant]
     Active Substance: IBUPROFEN
     Dosage: UNK

REACTIONS (7)
  - Neuropathy peripheral [Unknown]
  - Acute kidney injury [Recovered/Resolved]
  - Psoriatic arthropathy [Recovering/Resolving]
  - Osteopenia [Unknown]
  - Psoriasis [Recovering/Resolving]
  - Headache [Recovered/Resolved]
  - Abdominal discomfort [Recovered/Resolved]
